FAERS Safety Report 24683719 (Version 1)
Quarter: 2024Q4

REPORT INFORMATION
  Report Type: Spontaneous
  Country: US (occurrence: US)
  Receive Date: 20241202
  Receipt Date: 20241202
  Transmission Date: 20250115
  Serious: Yes (Other)
  Sender: DR REDDYS
  Company Number: US-DRL-USA-LIT/USA/24/0017558

PATIENT
  Age: 70 Year
  Sex: Male

DRUGS (16)
  1. CLONIDINE [Suspect]
     Active Substance: CLONIDINE
     Indication: Hypertension
     Dosage: 0.3MCG TID,
  2. CLONIDINE [Suspect]
     Active Substance: CLONIDINE
     Dosage: REDUCED
  3. CLONIDINE [Suspect]
     Active Substance: CLONIDINE
     Dosage: HALVED
  4. CLONIDINE [Suspect]
     Active Substance: CLONIDINE
     Dosage: CLONIDINE 0.1 BID.
  5. LISINOPRIL [Suspect]
     Active Substance: LISINOPRIL
     Indication: Hypertension
     Dosage: 40MG TID,
  6. TORSEMIDE [Suspect]
     Active Substance: TORSEMIDE
     Indication: Blood aldosterone
  7. AMILORIDE [Suspect]
     Active Substance: AMILORIDE
     Indication: Blood aldosterone
  8. HYDRALAZINE [Suspect]
     Active Substance: HYDRALAZINE HYDROCHLORIDE
     Indication: Hypertension
  9. HYDRALAZINE [Suspect]
     Active Substance: HYDRALAZINE HYDROCHLORIDE
  10. LABETALOL [Suspect]
     Active Substance: LABETALOL
     Indication: Hypertension
  11. LABETALOL [Suspect]
     Active Substance: LABETALOL
  12. LABETALOL [Suspect]
     Active Substance: LABETALOL
     Dosage: LABETALOL 200 BID
  13. SPIRONOLACTONE [Concomitant]
     Active Substance: SPIRONOLACTONE
     Indication: Product used for unknown indication
  14. HYDROCHLOROTHIAZIDE [Concomitant]
     Active Substance: HYDROCHLOROTHIAZIDE
     Indication: Product used for unknown indication
  15. TORSEMIDE [Concomitant]
     Active Substance: TORSEMIDE
     Indication: Product used for unknown indication
  16. AMILORIDE [Concomitant]
     Active Substance: AMILORIDE
     Indication: Product used for unknown indication

REACTIONS (3)
  - Acute kidney injury [Unknown]
  - Drug ineffective [Unknown]
  - Hypotension [Unknown]
